FAERS Safety Report 7990235-3 (Version None)
Quarter: 2011Q4

REPORT INFORMATION
  Report Type: 
  Country: None (occurrence: None)
  Receive Date: 20111219
  Receipt Date: 20101208
  Transmission Date: 20120403
  Serious: No
  Sender: FDA-Public Use
  Company Number: US-ASTRAZENECA-2010SE58260

PATIENT
  Age: 67 Year
  Sex: Female
  Weight: 95.3 kg

DRUGS (1)
  1. CRESTOR [Suspect]
     Indication: BLOOD CHOLESTEROL INCREASED
     Route: 048
     Dates: start: 20050101, end: 20090101

REACTIONS (5)
  - PAIN IN EXTREMITY [None]
  - MUSCULAR WEAKNESS [None]
  - FOOT DEFORMITY [None]
  - VISUAL ACUITY REDUCED [None]
  - FINGER DEFORMITY [None]
